FAERS Safety Report 10537576 (Version 1)
Quarter: 2014Q4

REPORT INFORMATION
  Report Type: Spontaneous
  Country: US (occurrence: None)
  Receive Date: 20141021
  Receipt Date: 20141021
  Transmission Date: 20150529
  Serious: Yes (Other)
  Sender: FDA-Public Use
  Company Number: ADR-2014-01921

PATIENT
  Sex: Female

DRUGS (2)
  1. DILAUDID [Suspect]
     Active Substance: HYDROMORPHONE HYDROCHLORIDE
     Dosage: DAY
  2. COMPOUNDED BACLOFEN [Suspect]
     Active Substance: BACLOFEN

REACTIONS (19)
  - Electric shock [None]
  - Dehydration [None]
  - Fall [None]
  - Haemorrhage [None]
  - Drug withdrawal syndrome [None]
  - Diarrhoea [None]
  - Weight increased [None]
  - Tremor [None]
  - Dry mouth [None]
  - Insomnia [None]
  - Procedural complication [None]
  - Victim of crime [None]
  - Pain [None]
  - Device dislocation [None]
  - Device battery issue [None]
  - Retching [None]
  - Gastrointestinal pain [None]
  - Post procedural infection [None]
  - Infection [None]
